FAERS Safety Report 10248212 (Version 1)
Quarter: 2014Q2

REPORT INFORMATION
  Report Type: Spontaneous
  Country: US (occurrence: US)
  Receive Date: 20140620
  Receipt Date: 20140620
  Transmission Date: 20141212
  Serious: No
  Sender: FDA-Public Use
  Company Number: US-B.I. PHARMACEUTICALS,INC./RIDGEFIELD-2014-BI-26457BP

PATIENT
  Age: 71 Year
  Sex: Female
  Weight: 44 kg

DRUGS (8)
  1. SPIRIVA [Suspect]
     Indication: CHRONIC OBSTRUCTIVE PULMONARY DISEASE
     Dosage: 18 MCG
     Route: 055
     Dates: start: 201312
  2. DIOVAN [Concomitant]
     Dosage: 160 MG
     Route: 048
  3. ALPRAZALAM [Concomitant]
     Indication: ANXIETY
     Dosage: STRENGTH: 0.25; DAILY DOSE: 0.75
     Route: 048
     Dates: start: 201312
  4. LEVOTHYROXINE [Concomitant]
     Indication: THYROID DISORDER
     Dosage: 88 MCG
     Route: 048
  5. PAROXETINE [Concomitant]
     Dosage: 20 MG
     Route: 048
  6. DILTIAZEM [Concomitant]
     Dosage: 120 MG
     Route: 048
  7. HYDROCODONE/APAP [Concomitant]
     Indication: PAIN
     Dosage: STRENGTH: 7.5MG/325MG; DAILY DOSE: 30MG/1300MG
     Route: 048
  8. ZANTAC [Concomitant]
     Indication: DYSPEPSIA
     Route: 048

REACTIONS (1)
  - Dyspnoea [Not Recovered/Not Resolved]
